FAERS Safety Report 8985700 (Version 1)
Quarter: 2012Q4

REPORT INFORMATION
  Report Type: 
  Country: GB (occurrence: GB)
  Receive Date: 20121226
  Receipt Date: 20121226
  Transmission Date: 20130627
  Serious: Yes (Hospitalization)
  Sender: FDA-Public Use
  Company Number: GB-JNJFOC-20121209221

PATIENT
  Age: 63 Year
  Sex: Female

DRUGS (6)
  1. RISPERIDONE [Suspect]
     Indication: PRODUCT USED FOR UNKNOWN INDICATION
     Route: 048
     Dates: start: 20121011, end: 20121108
  2. CHLORAMPHENICOL [Concomitant]
     Route: 065
  3. LAXIDO [Concomitant]
     Route: 065
  4. MIRTAZAPINE [Concomitant]
     Route: 065
  5. SENNA [Concomitant]
     Route: 065
  6. VENLAFAXINE [Concomitant]
     Route: 065

REACTIONS (17)
  - Muscle rigidity [Unknown]
  - Antinuclear antibody positive [Unknown]
  - Extrapyramidal disorder [Recovered/Resolved]
  - Fall [Unknown]
  - Iron deficiency anaemia [Recovered/Resolved]
  - Parkinsonism [Recovered/Resolved]
  - Tachycardia [Unknown]
  - Dyskinesia [Unknown]
  - Balance disorder [Unknown]
  - Bradyphrenia [Unknown]
  - Constipation [Unknown]
  - Hyperhidrosis [Unknown]
  - Gait disturbance [Unknown]
  - Hypertonia [Unknown]
  - Emotional poverty [Unknown]
  - Masked facies [Unknown]
  - Slow response to stimuli [Unknown]
